FAERS Safety Report 20900734 (Version 1)
Quarter: 2022Q2

REPORT INFORMATION
  Report Type: Spontaneous
  Country: US (occurrence: None)
  Receive Date: 20220531
  Receipt Date: 20220531
  Transmission Date: 20220721
  Serious: Yes (Hospitalization)
  Sender: FDA-Public Use
  Company Number: None

PATIENT
  Age: 41 Year
  Sex: Female

DRUGS (7)
  1. HUMIRA [Suspect]
     Active Substance: ADALIMUMAB
     Indication: Rheumatoid arthritis
     Dosage: 40 MG/0.4ML??INJECT 0.4 ML UNDER THE SKIN (SUBCUTANEOUS INJECTION) EVERY 14 DAYS
     Route: 058
     Dates: start: 20210526
  2. DEPO-MEDROL INJ [Concomitant]
  3. EFFEXOR XR CAP [Concomitant]
  4. METHOTREXATE [Concomitant]
  5. PROTONIX [Concomitant]
     Active Substance: PANTOPRAZOLE SODIUM
  6. SAXENDA INJ [Concomitant]
  7. SUCRALFATE TAB [Concomitant]

REACTIONS (3)
  - Therapy interrupted [None]
  - Surgery [None]
  - Rheumatoid arthritis [None]

NARRATIVE: CASE EVENT DATE: 20220525
